FAERS Safety Report 6837603-0 (Version None)
Quarter: 2010Q3

REPORT INFORMATION
  Report Type: 
  Country: None (occurrence: None)
  Receive Date: 20100713
  Receipt Date: 20070514
  Transmission Date: 20110219
  Serious: Yes (Other)
  Sender: FDA-Public Use
  Company Number: US-PFIZER INC-2007040743

PATIENT
  Sex: Male
  Weight: 86.363 kg

DRUGS (14)
  1. CHANTIX [Suspect]
     Indication: SMOKING CESSATION THERAPY
     Dates: start: 20070501, end: 20070501
  2. LIPITOR [Concomitant]
  3. BUFFERIN [Concomitant]
  4. TOPAMAX [Concomitant]
  5. DIURETICS [Concomitant]
  6. ATENOLOL [Concomitant]
  7. ENALAPRIL MALEATE [Concomitant]
  8. PROZAC [Concomitant]
  9. GLIPIZIDE [Concomitant]
  10. METFORMIN [Concomitant]
  11. POTASSIUM [Concomitant]
     Dosage: TWO TABLETS EVERY MORNING
  12. OXYCONTIN [Concomitant]
     Dosage: 40MG AND 80MG
  13. PERCOCET [Concomitant]
  14. XANAX [Concomitant]

REACTIONS (5)
  - CONSTIPATION [None]
  - FATIGUE [None]
  - INSOMNIA [None]
  - MIGRAINE [None]
  - SOMNOLENCE [None]
